FAERS Safety Report 6097859-1 (Version None)
Quarter: 2009Q1

REPORT INFORMATION
  Report Type: 
  Country: None (occurrence: None)
  Receive Date: 20090227
  Receipt Date: 20090224
  Transmission Date: 20090719
  Serious: Yes (Hospitalization)
  Sender: FDA-Public Use
  Company Number: US-WYE-H08341409

PATIENT
  Age: 67 Year
  Sex: Female

DRUGS (3)
  1. TEMSIROLIMUS [Suspect]
     Indication: MALIGNANT MELANOMA
     Dosage: 25MG IV DAYS 1 AND 8 OF 14 DAY CYCLE
     Route: 042
     Dates: start: 20081215, end: 20090101
  2. TEMSIROLIMUS [Suspect]
     Dosage: 20MG ON LAST DOSE
     Route: 042
     Dates: start: 20090202, end: 20090202
  3. BEVACIZUMAB [Suspect]
     Dosage: 10MG/KG OVER 90 MINUTES ON DAY 8 OF 14 DAY  CYCLE
     Route: 042
     Dates: start: 20081215, end: 20090202

REACTIONS (2)
  - ABDOMINAL PAIN [None]
  - ENCEPHALOPATHY [None]
